FAERS Safety Report 11277756 (Version 1)
Quarter: 2015Q3

REPORT INFORMATION
  Report Type: Report from Study
  Country: IN (occurrence: IN)
  Receive Date: 20150716
  Receipt Date: 20150716
  Transmission Date: 20151125
  Serious: Yes (Death)
  Sender: FDA-Public Use
  Company Number: PHHY2015IN083540

PATIENT
  Age: 64 Year
  Sex: Male

DRUGS (1)
  1. SANDIMMUN NEORAL [Suspect]
     Active Substance: CYCLOSPORINE
     Indication: TRANSPLANT
     Dosage: 50 MG, BID
     Route: 048
     Dates: start: 2006

REACTIONS (1)
  - Multi-organ failure [Fatal]

NARRATIVE: CASE EVENT DATE: 20150622
